FAERS Safety Report 10595265 (Version 1)
Quarter: 2014Q4

REPORT INFORMATION
  Report Type: Spontaneous
  Country: US (occurrence: None)
  Receive Date: 20141118
  Receipt Date: 20141118
  Transmission Date: 20150529
  Serious: Yes (Other)
  Sender: FDA-Public Use
  Company Number: INS201411-000255

PATIENT
  Sex: Female

DRUGS (1)
  1. SUBSYS [Suspect]
     Active Substance: FENTANYL

REACTIONS (1)
  - Road traffic accident [None]
